FAERS Safety Report 13033559 (Version 1)
Quarter: 2016Q4

REPORT INFORMATION
  Report Type: Spontaneous
  Country: US (occurrence: US)
  Receive Date: 20161216
  Receipt Date: 20161216
  Transmission Date: 20170207
  Serious: No
  Sender: FDA-Public Use
  Company Number: US-009507513-1612USA002886

PATIENT
  Age: 55 Year
  Sex: Male

DRUGS (4)
  1. LEXAPRO [Concomitant]
     Active Substance: ESCITALOPRAM OXALATE
  2. ATORVASTATIN [Concomitant]
     Active Substance: ATORVASTATIN
  3. PROAIR HFA [Concomitant]
     Active Substance: ALBUTEROL SULFATE
  4. PROVENTIL [Suspect]
     Active Substance: ALBUTEROL
     Indication: ASTHMA
     Dosage: 90 MCG/^1 OR 2 PUFFS 4 TIMES DAILY^
     Route: 055

REACTIONS (4)
  - Nasal congestion [Not Recovered/Not Resolved]
  - Rhinorrhoea [Not Recovered/Not Resolved]
  - Drug dose omission [Unknown]
  - Product quality issue [Unknown]

NARRATIVE: CASE EVENT DATE: 20161124
